FAERS Safety Report 9473398 (Version 1)
Quarter: 2013Q3

REPORT INFORMATION
  Report Type: Spontaneous
  Country: US (occurrence: None)
  Receive Date: 20130820
  Receipt Date: 20130820
  Transmission Date: 20140515
  Serious: Yes (Other)
  Sender: FDA-Public Use
  Company Number: 2013US00550

PATIENT
  Age: 16 Year
  Sex: Female

DRUGS (2)
  1. SERTRALINE [Suspect]
  2. METHYLPHENIDATE [Suspect]

REACTIONS (3)
  - Cerebral vasoconstriction [None]
  - Headache [None]
  - Subarachnoid haemorrhage [None]
